FAERS Safety Report 7515477-2 (Version None)
Quarter: 2011Q2

REPORT INFORMATION
  Report Type: 
  Country: None (occurrence: None)
  Receive Date: 20110601
  Receipt Date: 20100708
  Transmission Date: 20111010
  Serious: Yes (Other)
  Sender: FDA-Public Use
  Company Number: US-PFIZER INC-2010023236

PATIENT
  Sex: Male

DRUGS (3)
  1. CHANTIX [Suspect]
     Indication: SMOKING CESSATION THERAPY
     Dosage: UNK
     Route: 048
     Dates: start: 20071001, end: 20080401
  2. SULFADIAZINE SILVER [Concomitant]
     Indication: RASH
     Dosage: 1 %, UNK
     Route: 061
     Dates: start: 20050101, end: 20090101
  3. LEVOTHYROXINE [Concomitant]
     Indication: THYROID DISORDER
     Dosage: UNK
     Dates: start: 20020101

REACTIONS (5)
  - SUICIDE ATTEMPT [None]
  - ABNORMAL DREAMS [None]
  - DEPRESSION [None]
  - ANXIETY [None]
  - AGGRESSION [None]
